FAERS Safety Report 8452613-8 (Version None)
Quarter: 2012Q2

REPORT INFORMATION
  Report Type: 
  Country: None (occurrence: None)
  Receive Date: 20120620
  Receipt Date: 20120515
  Transmission Date: 20120825
  Serious: No
  Sender: FDA-Public Use
  Company Number: US-VERTEX PHARMACEUTICALS INC.-AE-2012-005689

PATIENT
  Sex: Male
  Weight: 87.168 kg

DRUGS (6)
  1. INCIVEK [Suspect]
     Indication: HEPATITIS C
     Route: 048
     Dates: start: 20120319
  2. MS COTIN [Concomitant]
  3. KLONOPIN [Concomitant]
  4. RIBAVIRIN [Concomitant]
     Indication: HEPATITIS C
     Dates: start: 20120319
  5. PEGASYS [Concomitant]
     Indication: HEPATITIS C
     Route: 058
     Dates: start: 20120319
  6. RIBAVIRIN [Concomitant]
     Route: 048
     Dates: start: 20120418

REACTIONS (10)
  - NASOPHARYNGITIS [None]
  - HAEMOGLOBIN DECREASED [None]
  - INFLUENZA LIKE ILLNESS [None]
  - NAUSEA [None]
  - DIARRHOEA [None]
  - PYREXIA [None]
  - VOMITING [None]
  - DRUG DOSE OMISSION [None]
  - PRODUCTIVE COUGH [None]
  - HYPOPROTEINAEMIA [None]
